FAERS Safety Report 14935886 (Version 1)
Quarter: 2018Q2

REPORT INFORMATION
  Report Type: Report from Study
  Country: US (occurrence: US)
  Receive Date: 20180524
  Receipt Date: 20180524
  Transmission Date: 20180711
  Serious: Yes (Death, Hospitalization)
  Sender: FDA-Public Use
  Company Number: US-ACTELION-A-NJ2015-121732

PATIENT
  Age: 79 Year
  Sex: Male
  Weight: 64.85 kg

DRUGS (5)
  1. COUMADIN [Concomitant]
     Active Substance: WARFARIN SODIUM
  2. TRACLEER [Suspect]
     Active Substance: BOSENTAN
     Indication: PULMONARY ARTERIAL HYPERTENSION
     Dosage: 125 MG, BID
     Route: 048
  3. DILTIAZEM. [Concomitant]
     Active Substance: DILTIAZEM
  4. VENTAVIS [Suspect]
     Active Substance: ILOPROST
     Indication: PULMONARY ARTERIAL HYPERTENSION
     Dosage: 2.5 MCG, 6-9 TIMES DAILY
     Route: 055
  5. VENTAVIS [Suspect]
     Active Substance: ILOPROST
     Dosage: 5 MCG, 6-9 TIMES DAILY
     Route: 055

REACTIONS (10)
  - Pulmonary arterial hypertension [Unknown]
  - Death [Fatal]
  - Pericardial effusion [Unknown]
  - Hypoxia [Unknown]
  - Pleural effusion [Unknown]
  - Oedema peripheral [Unknown]
  - Fluid retention [Unknown]
  - Cardiac failure [Unknown]
  - Dyspnoea [Unknown]
  - Oxygen saturation decreased [Unknown]

NARRATIVE: CASE EVENT DATE: 20180509
